FAERS Safety Report 10186865 (Version 2)
Quarter: 2014Q3

REPORT INFORMATION
  Report Type: Spontaneous
  Country: US (occurrence: US)
  Receive Date: 20140522
  Receipt Date: 20140704
  Transmission Date: 20150326
  Serious: Yes (Hospitalization)
  Sender: FDA-Public Use
  Company Number: 2014SP002804

PATIENT
  Age: 39 Year
  Sex: Female
  Weight: 67.1 kg

DRUGS (10)
  1. DOXORUBICIN [Suspect]
     Active Substance: DOXORUBICIN
     Indication: SOFT TISSUE NEOPLASM
     Route: 040
     Dates: start: 20140226, end: 20140226
  2. DOXORUBICIN [Suspect]
     Active Substance: DOXORUBICIN
     Indication: SOFT TISSUE NEOPLASM
     Dates: start: 20131114
  3. ONDANSETRON [Concomitant]
     Active Substance: ONDANSETRON
     Dates: start: 20131114, end: 20140226
  4. PEGFILGRASTIM [Concomitant]
     Active Substance: PEGFILGRASTIM
     Dates: start: 20140227, end: 20140227
  5. LORAZEPAM. [Concomitant]
     Active Substance: LORAZEPAM
     Dates: start: 20131114
  6. DEXAMETHASONE. [Concomitant]
     Active Substance: DEXAMETHASONE
     Dates: start: 20131114, end: 20140303
  7. PROCHLORPERAZINE. [Concomitant]
     Active Substance: PROCHLORPERAZINE
     Dates: start: 20131114
  8. IBUPROFEN SODIUM [Concomitant]
     Active Substance: IBUPROFEN SODIUM
     Dates: start: 20131218
  9. ALPRAZOLAM. [Concomitant]
     Active Substance: ALPRAZOLAM
     Dates: start: 2013
  10. SERTRALINE [Concomitant]
     Active Substance: SERTRALINE HYDROCHLORIDE
     Dates: start: 2013

REACTIONS (13)
  - Blood albumin decreased [None]
  - Blood alkaline phosphatase increased [None]
  - Blood bilirubin increased [None]
  - Metastases to central nervous system [None]
  - Headache [Recovered/Resolved]
  - Haemoglobin decreased [None]
  - Blood sodium decreased [None]
  - Lymphocyte count decreased [None]
  - Syncope [Recovered/Resolved]
  - Dehydration [Recovered/Resolved]
  - White blood cell count decreased [None]
  - Blood glucose increased [None]
  - Platelet count decreased [None]

NARRATIVE: CASE EVENT DATE: 20140305
